FAERS Safety Report 9232736 (Version 1)
Quarter: 2013Q1

REPORT INFORMATION
  Report Type: Spontaneous
  Country: US (occurrence: None)
  Receive Date: 20121031
  Receipt Date: 20121031
  Transmission Date: 20140127
  Serious: No
  Sender: FDA-Public Use
  Company Number: PHEH2012US011870

PATIENT
  Age: 51 Year
  Sex: Female

DRUGS (13)
  1. GILENYA (FTY) CAPSULE, 0.5 MG [Suspect]
     Dosage: 1 DF, QD, ORAL
     Route: 048
  2. FUROSEMIDE (FUROSEMIDE) [Concomitant]
  3. ESTRADIOL (ESTRADIOL) (GEL) [Concomitant]
  4. LEVOTHYROXINE (LEVOTHYROXINE) [Concomitant]
  5. CYMBALTA (DULOXETINE HYDROCHLORIDE) [Concomitant]
  6. NEURONTIN (GABAPENTIN) [Concomitant]
  7. AMITIZA (LUBIPROSTONE) [Concomitant]
  8. ALPRAZOLAM (ALPRAZOLAM) [Concomitant]
  9. RITALIN (METHYLPHENIDATE HYDROCHLORIDE) [Concomitant]
  10. WELLBUTRIN (BUPROPION HYDROCHLORIDE) [Concomitant]
  11. TRAZODONE (TRAZODONE) [Concomitant]
  12. VALIUM (DIAZEPAM) [Concomitant]
  13. PREDNISONE (PREDNISONE) [Concomitant]

REACTIONS (1)
  - Constipation [None]
